FAERS Safety Report 7419890-3 (Version None)
Quarter: 2011Q2

REPORT INFORMATION
  Report Type: 
  Country: None (occurrence: None)
  Receive Date: 20110413
  Receipt Date: 20110413
  Transmission Date: 20111010
  Serious: Yes (Hospitalization)
  Sender: FDA-Public Use
  Company Number: None

PATIENT
  Age: 61 Year
  Sex: Male
  Weight: 139 kg

DRUGS (2)
  1. RANIBIZUMAB 10MG/ML, 0.3ML/VIAL GENENTECH [Suspect]
     Indication: RETINAL VEIN OCCLUSION
     Dosage: 0.5MG Q 4 WKS INTRAVITREALLY
     Dates: start: 20110210
  2. RANIBIZUMAB 10MG/ML, 0.3ML/VIAL GENENTECH [Suspect]
     Indication: RETINAL VEIN OCCLUSION
     Dosage: 0.5MG Q 4 WKS INTRAVITREALLY
     Dates: start: 20110317

REACTIONS (4)
  - OEDEMA PERIPHERAL [None]
  - CHRONIC OBSTRUCTIVE PULMONARY DISEASE [None]
  - CARDIAC FAILURE CONGESTIVE [None]
  - DYSPNOEA [None]
